FAERS Safety Report 19847367 (Version 3)
Quarter: 2021Q4

REPORT INFORMATION
  Report Type: Spontaneous
  Country: GB (occurrence: GB)
  Receive Date: 20210917
  Receipt Date: 20211005
  Transmission Date: 20220303
  Serious: Yes (Hospitalization, Other)
  Sender: FDA-Public Use
  Company Number: GB-TEVA-2021-GB-1902320

PATIENT
  Age: 35 Year
  Sex: Male
  Weight: 69.6 kg

DRUGS (4)
  1. CIPROFLOXACIN [Suspect]
     Active Substance: CIPROFLOXACIN
     Dosage: UNK (DOSAGE MORE THAN DOUBLED)
  2. OFLOXACIN [Suspect]
     Active Substance: OFLOXACIN
     Indication: Prostatitis
     Dosage: 400 MG, DAILY
     Route: 048
     Dates: start: 20210308
  3. ZOPICLONE [Concomitant]
     Active Substance: ZOPICLONE
     Indication: Insomnia
     Dosage: 7.5 MG, AS NEEDED (ONCE DAILY AS NEEDED, 1/2-1 TABLET)
  4. CODEINE [Concomitant]
     Active Substance: CODEINE
     Dosage: UNK

REACTIONS (20)
  - Product prescribing error [Unknown]
  - Illness [Not Recovered/Not Resolved]
  - Tinnitus [Not Recovered/Not Resolved]
  - Malaise [Not Recovered/Not Resolved]
  - Impaired work ability [Unknown]
  - Loss of personal independence in daily activities [Unknown]
  - Pain [Unknown]
  - Dyspnoea [Not Recovered/Not Resolved]
  - Groin pain [Not Recovered/Not Resolved]
  - Abdominal pain [Not Recovered/Not Resolved]
  - Prostatic pain [Not Recovered/Not Resolved]
  - Condition aggravated [Not Recovered/Not Resolved]
  - Drug hypersensitivity [Unknown]
  - Nephrolithiasis [Unknown]
  - Neuropathy peripheral [Unknown]
  - Hypoaesthesia [Unknown]
  - Paraesthesia [Unknown]
  - Hypotonia [Unknown]
  - Blood urine present [Unknown]
  - Weight decreased [Unknown]
